FAERS Safety Report 9483889 (Version 1)
Quarter: 2013Q3

REPORT INFORMATION
  Report Type: Spontaneous
  Country: CA (occurrence: CA)
  Receive Date: 20130828
  Receipt Date: 20130828
  Transmission Date: 20140515
  Serious: Yes (Hospitalization, Other)
  Sender: FDA-Public Use
  Company Number: CA-AMGEN-KDL346731

PATIENT
  Age: 80 Year
  Sex: Female
  Weight: 88.1 kg

DRUGS (1)
  1. ENBREL [Suspect]
     Indication: RHEUMATOID ARTHRITIS
     Dosage: UNK UNK, 2 TIMES/WK
     Route: 065
     Dates: start: 20030612, end: 20090112

REACTIONS (2)
  - Squamous cell carcinoma [Unknown]
  - Cellulitis [Recovering/Resolving]
